FAERS Safety Report 9707116 (Version 1)
Quarter: 2013Q4

REPORT INFORMATION
  Report Type: Spontaneous
  Country: US (occurrence: None)
  Receive Date: 20131122
  Receipt Date: 20131122
  Transmission Date: 20140711
  Serious: No
  Sender: FDA-Public Use
  Company Number: None

PATIENT
  Sex: 0

DRUGS (1)
  1. AMLODIPINE-BENAZEPRIL [Suspect]
     Dosage: 5-2 MG
     Route: 048
     Dates: start: 20130915, end: 20131003

REACTIONS (2)
  - Adverse event [None]
  - Product substitution issue [None]
